FAERS Safety Report 8194533-2 (Version None)
Quarter: 2012Q1

REPORT INFORMATION
  Report Type: 
  Country: None (occurrence: None)
  Receive Date: 20120308
  Receipt Date: 20110527
  Transmission Date: 20120608
  Serious: No
  Sender: FDA-Public Use
  Company Number: US-GLAXOSMITHKLINE-A0929482A

PATIENT
  Age: 20 Year
  Sex: Female

DRUGS (1)
  1. NICOTINE POLACRILEX [Suspect]
     Indication: EX-TOBACCO USER

REACTIONS (4)
  - THROAT IRRITATION [None]
  - PARAESTHESIA [None]
  - MATERNAL EXPOSURE DURING PREGNANCY [None]
  - DRUG ADMINISTRATION ERROR [None]
